FAERS Safety Report 8380643-3 (Version None)
Quarter: 2012Q2

REPORT INFORMATION
  Report Type: 
  Country: None (occurrence: None)
  Receive Date: 20120523
  Receipt Date: 20120511
  Transmission Date: 20120825
  Serious: Yes (Death, Life-Threatening, Hospitalization)
  Sender: FDA-Public Use
  Company Number: JP-ACTELION-A-CH2012-65843

PATIENT
  Sex: Female
  Weight: 68 kg

DRUGS (6)
  1. TRACLEER [Suspect]
     Indication: PULMONARY ARTERIAL HYPERTENSION
     Dosage: 125 MG, BID
     Route: 048
     Dates: start: 20081119, end: 20100701
  2. SPIRONOLACTONE [Concomitant]
  3. TRACLEER [Suspect]
     Dosage: 62.5 MG, BID
     Route: 048
     Dates: start: 20081105, end: 20081118
  4. SILDENAFIL CITRATE [Concomitant]
     Dosage: 30 MG, UNK
  5. SILDENAFIL CITRATE [Concomitant]
     Dosage: 60 MG, UNK
  6. FUROSEMIDE [Concomitant]

REACTIONS (29)
  - CONDITION AGGRAVATED [None]
  - DECREASED APPETITE [None]
  - PROTEIN TOTAL DECREASED [None]
  - HAEMODIALYSIS [None]
  - BACTERAEMIA [None]
  - GENERALISED OEDEMA [None]
  - ANURIA [None]
  - RESUSCITATION [None]
  - HEPATIC FAILURE [None]
  - BILIRUBIN CONJUGATED INCREASED [None]
  - PLEURAL EFFUSION [None]
  - CATHETER PLACEMENT [None]
  - DEVICE RELATED INFECTION [None]
  - RENAL FAILURE ACUTE [None]
  - JAUNDICE [None]
  - JUGULAR VEIN DISTENSION [None]
  - ASCITES [None]
  - HEPATORENAL SYNDROME [None]
  - RIGHT VENTRICULAR FAILURE [None]
  - HYPOPHAGIA [None]
  - OEDEMA [None]
  - DEHYDRATION [None]
  - TRANSFUSION [None]
  - METABOLIC ACIDOSIS [None]
  - PULMONARY ARTERIAL HYPERTENSION [None]
  - BLOOD PRESSURE DECREASED [None]
  - CARDIO-RESPIRATORY ARREST [None]
  - DISEASE PROGRESSION [None]
  - BLOOD BILIRUBIN INCREASED [None]
